FAERS Safety Report 10082977 (Version 2)
Quarter: 2014Q2

REPORT INFORMATION
  Report Type: Spontaneous
  Country: CA (occurrence: CA)
  Receive Date: 20140417
  Receipt Date: 20140513
  Transmission Date: 20141212
  Serious: Yes (Death)
  Sender: FDA-Public Use
  Company Number: CA-AMGEN INC.-CANSP2014026570

PATIENT
  Age: 58 Year
  Sex: Female

DRUGS (8)
  1. PROLIA [Suspect]
     Indication: OSTEOPOROSIS POSTMENOPAUSAL
     Dosage: 60 MG/ML, UNK
     Route: 065
     Dates: start: 20140403
  2. JANUVIA [Concomitant]
  3. LYRICA [Concomitant]
  4. CYMBALTA [Concomitant]
  5. INSULIN [Concomitant]
     Indication: DIABETES MELLITUS
  6. NITRO                              /00003201/ [Concomitant]
     Indication: ANGINA PECTORIS
  7. LIPITOR [Concomitant]
  8. THYROID [Concomitant]

REACTIONS (3)
  - Diabetes mellitus [Fatal]
  - Cardiac arrest [Fatal]
  - Hypertension [Fatal]
